FAERS Safety Report 5463570-0 (Version None)
Quarter: 2007Q3

REPORT INFORMATION
  Report Type: 
  Country: None (occurrence: None)
  Receive Date: 20070919
  Receipt Date: 20070905
  Transmission Date: 20080115
  Serious: Yes (Death)
  Sender: FDA-Public Use
  Company Number: 2007S1000340

PATIENT
  Age: 61 Year
  Sex: Female

DRUGS (4)
  1. CUBICIN [Suspect]
     Indication: BACTERAEMIA
     Dosage: 8 MG/KG; Q24H;
  2. CUBICIN [Suspect]
     Indication: ENDOCARDITIS
     Dosage: 8 MG/KG; Q24H;
  3. LINEZOLID [Concomitant]
  4. QUINUPRISTIN/DALFOPRISTIN [Concomitant]

REACTIONS (1)
  - TREATMENT FAILURE [None]
